FAERS Safety Report 21048564 (Version 2)
Quarter: 2022Q3

REPORT INFORMATION
  Report Type: Spontaneous
  Country: CZ (occurrence: CZ)
  Receive Date: 20220706
  Receipt Date: 20220725
  Transmission Date: 20221026
  Serious: No
  Sender: FDA-Public Use
  Company Number: CZ-NOVARTISPH-NVSC2022CZ151241

PATIENT
  Age: 2 Year
  Sex: Male

DRUGS (4)
  1. PENICILLIN V BENZATHINE [Suspect]
     Active Substance: PENICILLIN V BENZATHINE
     Indication: Streptococcal infection
     Dosage: 0.4 MIU/5 ML, TID
     Route: 048
     Dates: start: 20220622
  2. PARALEN SUS [Concomitant]
     Indication: Pyrexia
     Dosage: 6 ML
     Route: 065
     Dates: start: 20220621, end: 20220623
  3. IBUPROFEN [Concomitant]
     Active Substance: IBUPROFEN
     Indication: Pyrexia
     Dosage: 3 ML, (SUSPENSION) (ALTERNATED THESE TWO EVERY 6 HOURS)
     Route: 065
     Dates: start: 20220621, end: 20220623
  4. TOBREX [Concomitant]
     Active Substance: TOBRAMYCIN
     Indication: Conjunctivitis
     Dosage: (3 TIMES A DAY 1 DROP IN EACH EYE) (DROPS)
     Route: 065
     Dates: start: 20220620, end: 20220625

REACTIONS (5)
  - Mood swings [Recovered/Resolved]
  - Decreased appetite [Recovered/Resolved]
  - Pyrexia [Not Recovered/Not Resolved]
  - Cough [Not Recovered/Not Resolved]
  - Drug ineffective [Unknown]

NARRATIVE: CASE EVENT DATE: 20220601
